FAERS Safety Report 6025429-X (Version None)
Quarter: 2008Q4

REPORT INFORMATION
  Report Type: 
  Country: None (occurrence: None)
  Receive Date: 20081229
  Receipt Date: 20081229
  Transmission Date: 20090506
  Serious: Yes (Hospitalization)
  Sender: FDA-Public Use
  Company Number: None

PATIENT
  Age: 71 Year
  Sex: Male
  Weight: 119.7496 kg

DRUGS (2)
  1. ACTIVASE [Suspect]
     Indication: CEREBROVASCULAR ACCIDENT
     Dosage: 11 MG ONCE IV BOLUS
     Route: 040
     Dates: start: 20081222, end: 20081222
  2. ACTIVASE [Suspect]
     Dosage: 79 ONCE IV DRIP

REACTIONS (1)
  - HAEMORRHAGIC STROKE [None]
